FAERS Safety Report 19213774 (Version 4)
Quarter: 2021Q2

REPORT INFORMATION
  Report Type: Report from Study
  Country: US (occurrence: US)
  Receive Date: 20210505
  Receipt Date: 20210611
  Transmission Date: 20210717
  Serious: Yes (Hospitalization, Other)
  Sender: FDA-Public Use
  Company Number: US-ADVANZ PHARMA-202104003148

PATIENT

DRUGS (11)
  1. DUPILUMAB [Suspect]
     Active Substance: DUPILUMAB
     Dosage: 300 MG QOW, VIA PREFILLED SYRINGE.
     Route: 058
     Dates: start: 2020, end: 20201223
  2. DUPILUMAB [Suspect]
     Active Substance: DUPILUMAB
     Dosage: 600 MG (1X) VIA PREFILLED SYRINGE
     Route: 058
     Dates: start: 2020, end: 2020
  3. DUPILUMAB [Suspect]
     Active Substance: DUPILUMAB
     Dosage: 600 MG, SINGLE VIA PREFILLED SYRINGE.
     Route: 065
     Dates: start: 202103
  4. DUPILUMAB [Suspect]
     Active Substance: DUPILUMAB
     Indication: ECZEMA
     Dosage: 300 MG, QOW VIA PREFILLED PEN
     Route: 065
  5. VITAMIN C [Concomitant]
     Active Substance: ASCORBIC ACID
     Dosage: UNK
  6. HYDROXYCHLOROQUINE [Suspect]
     Active Substance: HYDROXYCHLOROQUINE
     Indication: RHEUMATOID ARTHRITIS
     Dosage: UNK
     Route: 065
  7. DUPILUMAB [Suspect]
     Active Substance: DUPILUMAB
     Indication: DERMATITIS ATOPIC
     Dosage: 600 MG, SINGLE (600 MG ONCE (1X) ) VIA PREFILLED SYRINGE.
     Route: 058
     Dates: start: 20191113, end: 20191113
  8. DUPILUMAB [Suspect]
     Active Substance: DUPILUMAB
     Dosage: 400 MG (RENEWED DOSE (2 INJECTIONS) SQ TIMES ON DAY 1) VIA PREFILLED SYRINGE.
     Route: 058
  9. DUPILUMAB [Suspect]
     Active Substance: DUPILUMAB
     Dosage: 200 MG (200 MG AS A MAINTENANCE DOSE EVERY TWO WEEKS) VIA PREFILLED SYRINGE.
     Route: 058
  10. DUPILUMAB [Suspect]
     Active Substance: DUPILUMAB
     Indication: DERMATITIS ALLERGIC
     Dosage: 300 MG (QOW) VIA PREFILLED SYRINGE.
     Route: 058
     Dates: start: 2019, end: 20190205
  11. DUPILUMAB [Suspect]
     Active Substance: DUPILUMAB
     Indication: DERMATITIS ATOPIC
     Dosage: 600 MG, SINGLE VIA PREFILLED PEN
     Route: 065
     Dates: start: 202103, end: 202103

REACTIONS (22)
  - Hepatic enzyme increased [Not Recovered/Not Resolved]
  - Inappropriate schedule of product administration [Unknown]
  - Rash [Not Recovered/Not Resolved]
  - Renal impairment [Not Recovered/Not Resolved]
  - Chronic obstructive pulmonary disease [Not Recovered/Not Resolved]
  - Off label use [Unknown]
  - Vomiting [Recovered/Resolved]
  - Therapeutic response decreased [Unknown]
  - Pain in extremity [Unknown]
  - Muscle spasms [Not Recovered/Not Resolved]
  - Diarrhoea [Recovering/Resolving]
  - Pruritus [Not Recovered/Not Resolved]
  - Product use in unapproved indication [Unknown]
  - Peripheral swelling [Unknown]
  - Dizziness [Unknown]
  - Blood creatinine increased [Not Recovered/Not Resolved]
  - Exposure to SARS-CoV-2 [Not Recovered/Not Resolved]
  - Injection site pain [Not Recovered/Not Resolved]
  - Rash [Not Recovered/Not Resolved]
  - Rheumatoid arthritis [Not Recovered/Not Resolved]
  - Feeling abnormal [Recovered/Resolved]
  - Hepatic function abnormal [Recovering/Resolving]

NARRATIVE: CASE EVENT DATE: 201912
